FAERS Safety Report 25041336 (Version 1)
Quarter: 2025Q1

REPORT INFORMATION
  Report Type: Spontaneous
  Country: US (occurrence: None)
  Receive Date: 20250305
  Receipt Date: 20250305
  Transmission Date: 20250409
  Serious: Yes (Hospitalization)
  Sender: FDA-CTU
  Company Number: None

PATIENT
  Sex: Female

DRUGS (11)
  1. PRALUENT [Suspect]
     Active Substance: ALIROCUMAB
     Indication: Hyperlipidaemia
     Dosage: FREQUENCY : EVERY OTHER WEEK;?
     Route: 058
     Dates: start: 20190201
  2. ALENDRONATE [Concomitant]
     Active Substance: ALENDRONATE SODIUM
  3. CLONIDINE DIS 0.2/24HR [Concomitant]
  4. CLOPIDOGREL TAB 75MG [Concomitant]
  5. ENTRESTO TAB 97-103MG [Concomitant]
  6. HYDRALAZINE TAB 50MG [Concomitant]
  7. ISOSORB MONO TAB 120MG ER [Concomitant]
  8. JARDIANCE TAB 25MG [Concomitant]
  9. NIFEDIPINE TAB 60MG ER [Concomitant]
  10. NITROGL YCERN SUB 0.4MG [Concomitant]
  11. RANOLAZINE TAB 1000MG [Concomitant]

REACTIONS (2)
  - Cerebrovascular accident [None]
  - Therapy interrupted [None]
